FAERS Safety Report 18947476 (Version 1)
Quarter: 2021Q1

REPORT INFORMATION
  Report Type: Spontaneous
  Country: RE (occurrence: RE)
  Receive Date: 20210226
  Receipt Date: 20210226
  Transmission Date: 20210420
  Serious: Yes (Hospitalization)
  Sender: FDA-Public Use
  Company Number: RE-ASTRAZENECA-2021A075301

PATIENT
  Sex: Female

DRUGS (1)
  1. FASENRA [Suspect]
     Active Substance: BENRALIZUMAB
     Indication: ASTHMA
     Route: 058
     Dates: start: 20210204, end: 20210204

REACTIONS (4)
  - Pruritus [Unknown]
  - Nausea [Unknown]
  - Pain in extremity [Unknown]
  - Hypertension [Unknown]

NARRATIVE: CASE EVENT DATE: 20210206
